FAERS Safety Report 4557248-5 (Version None)
Quarter: 2005Q1

REPORT INFORMATION
  Report Type: 
  Country: None (occurrence: None)
  Receive Date: 20050118
  Receipt Date: 20050106
  Transmission Date: 20050727
  Serious: Yes (Life-Threatening, Hospitalization)
  Sender: FDA-Public Use
  Company Number: 2005-BP-00219BP

PATIENT
  Age: 45 Year
  Sex: Male
  Weight: 80.4 kg

DRUGS (4)
  1. MICARDIS [Suspect]
     Indication: PROPHYLAXIS AGAINST TRANSPLANT REJECTION
     Dates: start: 20040615
  2. PROGRAF [Suspect]
     Indication: IMMUNOSUPPRESSION
     Dosage: 2.5 MG (0.5 MG)
     Dates: start: 19980202
  3. CELLCEPT [Suspect]
     Indication: IMMUNOSUPPRESSION
     Dosage: 1500 MG (250 MG)
     Dates: start: 19980202
  4. PREDNISONE [Suspect]
     Indication: IMMUNOSUPPRESSION
     Dosage: 2.5 MG (5 MG)
     Dates: start: 19980202

REACTIONS (2)
  - ENTEROCUTANEOUS FISTULA [None]
  - MYOCARDIAL ISCHAEMIA [None]
